FAERS Safety Report 10515505 (Version 5)
Quarter: 2015Q1

REPORT INFORMATION
  Report Type: Spontaneous
  Country: US (occurrence: None)
  Receive Date: 20141009
  Receipt Date: 20150313
  Transmission Date: 20150720
  Serious: Yes (Hospitalization)
  Sender: FDA-Public Use
  Company Number: SP08350

PATIENT
  Age: 59 Year
  Sex: Female
  Weight: 72.58 kg

DRUGS (2)
  1. RELISTOR [Suspect]
     Active Substance: METHYLNALTREXONE BROMIDE
     Indication: CONSTIPATION
     Route: 058
  2. LISINOPRIL. [Concomitant]
     Active Substance: LISINOPRIL

REACTIONS (19)
  - Abdominal pain [None]
  - Diarrhoea [None]
  - Dysstasia [None]
  - Hypokinesia [None]
  - Impaired work ability [None]
  - Diarrhoea haemorrhagic [None]
  - Vomiting [None]
  - Eating disorder [None]
  - Haematochezia [None]
  - Abasia [None]
  - Tremor [None]
  - Faeces hard [None]
  - Movement disorder [None]
  - Colitis [None]
  - Haemorrhage [None]
  - Hyperhidrosis [None]
  - Muscle contractions involuntary [None]
  - Pain [None]
  - Malaise [None]

NARRATIVE: CASE EVENT DATE: 20140806
